FAERS Safety Report 8069010-X (Version None)
Quarter: 2012Q1

REPORT INFORMATION
  Report Type: 
  Country: None (occurrence: None)
  Receive Date: 20120118
  Receipt Date: 20120109
  Transmission Date: 20120608
  Serious: Yes (Hospitalization, Other)
  Sender: FDA-Public Use
  Company Number: 2012SP001575

PATIENT
  Sex: Female
  Weight: 200.4899 kg

DRUGS (3)
  1. PEG-INTRON [Suspect]
     Indication: HEPATITIS C
     Dates: start: 20110725
  2. RIBAVIRIN [Suspect]
     Indication: HEPATITIS C
     Dates: start: 20110725
  3. TELAPREVIR [Suspect]
     Indication: HEPATITIS C
     Dates: start: 20110725

REACTIONS (13)
  - VERTIGO [None]
  - ESCHERICHIA URINARY TRACT INFECTION [None]
  - OEDEMA [None]
  - FATIGUE [None]
  - THERMAL BURN [None]
  - PANCYTOPENIA [None]
  - WEIGHT DECREASED [None]
  - SWELLING [None]
  - CELLULITIS [None]
  - URINARY INCONTINENCE [None]
  - HYPOTENSION [None]
  - FLUID RETENTION [None]
  - FUNGAL INFECTION [None]
